FAERS Safety Report 5203194-3 (Version None)
Quarter: 2006Q4

REPORT INFORMATION
  Report Type: 
  Country: None (occurrence: None)
  Receive Date: 20061016
  Receipt Date: 20060130
  Transmission Date: 20070319
  Serious: Yes (Hospitalization, Other)
  Sender: FDA-Public Use
  Company Number: 2006015761

PATIENT
  Age: 79 Year
  Sex: Male
  Weight: 88.905 kg

DRUGS (5)
  1. GABAPENTIN [Suspect]
     Indication: NEUROPATHY PERIPHERAL
     Dosage: 1800 MG (1 D)
  2. LYRICA [Suspect]
     Indication: NEUROPATHY PERIPHERAL
     Dosage: 150 MG (75 MG 2 IN 1 D)
     Dates: start: 20060119, end: 20060128
  3. ZYRTEC [Concomitant]
  4. QUININE SULFATE [Concomitant]
  5. OXYCONTIN [Concomitant]

REACTIONS (1)
  - PAIN IN EXTREMITY [None]
